FAERS Safety Report 7360772-3 (Version None)
Quarter: 2011Q1

REPORT INFORMATION
  Report Type: 
  Country: None (occurrence: None)
  Receive Date: 20110318
  Receipt Date: 20110316
  Transmission Date: 20110831
  Serious: Yes (Hospitalization, Other)
  Sender: FDA-Public Use
  Company Number: AU-PFIZER INC-2011058271

PATIENT
  Age: 30 Year
  Sex: Female

DRUGS (3)
  1. ZELDOX [Suspect]
     Indication: DEPRESSION
     Dosage: 20 MG, UNK
  2. ZELDOX [Suspect]
     Dosage: 40 MG, UNK
  3. CYMBALTA [Suspect]
     Indication: DEPRESSION
     Dosage: 120 MG, UNK

REACTIONS (8)
  - HYPERVENTILATION [None]
  - DISSOCIATION [None]
  - SUICIDAL IDEATION [None]
  - PANIC REACTION [None]
  - WITHDRAWAL SYNDROME [None]
  - MYOCLONUS [None]
  - INSOMNIA [None]
  - AGITATION [None]
